FAERS Safety Report 8193485-9 (Version None)
Quarter: 2012Q1

REPORT INFORMATION
  Report Type: 
  Country: None (occurrence: None)
  Receive Date: 20120308
  Receipt Date: 20120227
  Transmission Date: 20120608
  Serious: Yes (Hospitalization, Other)
  Sender: FDA-Public Use
  Company Number: US-ELI_LILLY_AND_COMPANY-US201009006339

PATIENT
  Sex: Female

DRUGS (20)
  1. FORTEO [Suspect]
     Dosage: 20 UG, QD
  2. SYNTHROID [Concomitant]
     Dosage: UNK, 4/W
  3. VITAMIN D [Concomitant]
  4. FORTEO [Suspect]
     Dosage: 20 UG, DAILY (1/D)
  5. CLARINEX [Concomitant]
  6. CALCIUM CARBONATE [Concomitant]
  7. FORTEO [Suspect]
     Indication: OSTEOPOROSIS
     Dosage: 20 UG, DAILY (1/D)
     Dates: start: 20100914
  8. IRON [Concomitant]
  9. FORTEO [Suspect]
     Dosage: 20 UG, QD
  10. PAXIL [Concomitant]
  11. CARTIA                             /00489702/ [Concomitant]
  12. LIPITOR [Concomitant]
  13. ALIGN [Concomitant]
  14. GLUCOSAMINE CHONDROITIN [Concomitant]
  15. FORTEO [Suspect]
     Dosage: 20 UG, QD
  16. MECLIZINE HYDROCHLORIDE [Concomitant]
  17. FORTEO [Suspect]
     Dosage: 20 UG, QD
  18. FORTEO [Suspect]
     Dosage: 20 UG, QD
  19. PLAVIX [Concomitant]
  20. CITRUCEL [Concomitant]

REACTIONS (12)
  - BLOOD PRESSURE DECREASED [None]
  - GENERAL PHYSICAL HEALTH DETERIORATION [None]
  - VITAMIN D DECREASED [None]
  - INJECTION SITE MASS [None]
  - INJECTION SITE PAIN [None]
  - CEREBROVASCULAR ACCIDENT [None]
  - DIZZINESS [None]
  - NAIL DISORDER [None]
  - BACK PAIN [None]
  - HAIR COLOUR CHANGES [None]
  - INJECTION SITE ERYTHEMA [None]
  - DRUG DOSE OMISSION [None]
